FAERS Safety Report 14603398 (Version 1)
Quarter: 2018Q1

REPORT INFORMATION
  Report Type: Spontaneous
  Country: IT (occurrence: IT)
  Receive Date: 20180306
  Receipt Date: 20180306
  Transmission Date: 20180509
  Serious: Yes (Hospitalization)
  Sender: FDA-Public Use
  Company Number: IT-MYLANLABS-2018M1014108

PATIENT
  Age: 62 Year
  Sex: Female

DRUGS (2)
  1. PYRIDOXINE [Suspect]
     Active Substance: PYRIDOXINE
     Indication: POLYNEUROPATHY
     Dosage: UNK
     Route: 030
  2. HYDROXOCOBALAMIN [Suspect]
     Active Substance: HYDROXOCOBALAMIN
     Indication: POLYNEUROPATHY
     Dosage: UNK
     Route: 030

REACTIONS (1)
  - Dermatitis acneiform [Recovered/Resolved]
